FAERS Safety Report 5509697-6 (Version None)
Quarter: 2007Q4

REPORT INFORMATION
  Report Type: 
  Country: None (occurrence: None)
  Receive Date: 20071108
  Receipt Date: 20071026
  Transmission Date: 20080405
  Serious: Yes (Hospitalization)
  Sender: FDA-Public Use
  Company Number: JP-JNJFOC-20071007424

PATIENT
  Age: 74 Year
  Sex: Female

DRUGS (5)
  1. ITRIZOLE [Suspect]
     Route: 048
  2. ITRIZOLE [Suspect]
     Route: 048
  3. ITRIZOLE [Suspect]
     Indication: DRUG USE FOR UNKNOWN INDICATION
     Route: 048
  4. TAKEPRON [Concomitant]
     Route: 048
  5. BLOPRESS [Concomitant]
     Route: 048

REACTIONS (1)
  - PANCYTOPENIA [None]
